FAERS Safety Report 8515162-4 (Version None)
Quarter: 2012Q3

REPORT INFORMATION
  Report Type: 
  Country: None (occurrence: None)
  Receive Date: 20120717
  Receipt Date: 20120217
  Transmission Date: 20120928
  Serious: Yes (Hospitalization)
  Sender: FDA-Public Use
  Company Number: US-GLAXOSMITHKLINE-A0966846A

PATIENT
  Age: 50 Year
  Sex: Male

DRUGS (2)
  1. AVANDIA [Suspect]
     Indication: DIABETES MELLITUS
     Route: 048
  2. AVANDAMET [Suspect]
     Route: 048
     Dates: start: 20030604, end: 20080116

REACTIONS (5)
  - NAUSEA [None]
  - STENT PLACEMENT [None]
  - WEIGHT INCREASED [None]
  - MYOCARDIAL INFARCTION [None]
  - CARDIAC FAILURE [None]
